FAERS Safety Report 6695413-1 (Version None)
Quarter: 2010Q2

REPORT INFORMATION
  Report Type: 
  Country: None (occurrence: None)
  Receive Date: 20100424
  Receipt Date: 20100413
  Transmission Date: 20101027
  Serious: Yes (Life-Threatening, Other)
  Sender: FDA-Public Use
  Company Number: US-ELI_LILLY_AND_COMPANY-US201004004082

PATIENT
  Age: 76 Year
  Sex: Female

DRUGS (12)
  1. CYMBALTA [Suspect]
     Dosage: 60 MG, DAILY (1/D)
     Dates: start: 20070401
  2. AMARYL [Concomitant]
  3. LISINOPRIL [Concomitant]
  4. LORCET-HD [Concomitant]
  5. FERROUS SULFATE TAB [Concomitant]
  6. ARICEPT [Concomitant]
  7. OMEPRAZOLE [Concomitant]
  8. LEVOTHYROXINE [Concomitant]
  9. NAMENDA [Concomitant]
  10. NORVASC [Concomitant]
  11. METFORMIN [Concomitant]
  12. CHLORTHALIDONE [Concomitant]

REACTIONS (2)
  - DYSPHAGIA [None]
  - NEOPLASM MALIGNANT [None]
